FAERS Safety Report 5590972-4 (Version None)
Quarter: 2008Q1

REPORT INFORMATION
  Report Type: 
  Country: None (occurrence: None)
  Receive Date: 20080110
  Receipt Date: 20080107
  Transmission Date: 20080703
  Serious: Yes (Hospitalization)
  Sender: FDA-Public Use
  Company Number: 2008000452

PATIENT
  Age: 35 Year
  Sex: Female

DRUGS (11)
  1. SUDAFED S.A. [Suspect]
     Dosage: 600 MG, ORAL
     Route: 048
     Dates: start: 20040225, end: 20040225
  2. NOZINAN (LEVOMEPROMAZINE) [Concomitant]
  3. ZYPREXA [Concomitant]
  4. TRANXENE [Concomitant]
  5. FLUPHENAZINE DECANOATE [Concomitant]
  6. HEPTAMINOL HYDROCHLORIDE (HEPTAMINOL HYDROCHLORIDE) [Concomitant]
  7. LEPTICUR (TROPATEPINE HYDROCHLORIDE) [Concomitant]
  8. ZOLPIDEM TARTRATE [Concomitant]
  9. DUPHALAC [Concomitant]
  10. GAVISCON [Concomitant]
  11. ENDOTELON (HERBAL EXTRACTS NOS, VITIS VINIFERA) [Concomitant]

REACTIONS (3)
  - DELIRIUM [None]
  - OVERDOSE [None]
  - SELF-MEDICATION [None]
